FAERS Safety Report 7973513-3 (Version None)
Quarter: 2011Q4

REPORT INFORMATION
  Report Type: 
  Country: None (occurrence: None)
  Receive Date: 20111213
  Receipt Date: 20111206
  Transmission Date: 20120403
  Serious: Yes (Other)
  Sender: FDA-Public Use
  Company Number: FR-TEVA-313171ISR

PATIENT
  Age: 54 Year
  Sex: Male

DRUGS (1)
  1. ZOLPIDEM [Suspect]

REACTIONS (3)
  - SEXUAL ABUSE [None]
  - INTENTIONAL DRUG MISUSE [None]
  - AGGRESSION [None]
